FAERS Safety Report 16054467 (Version 1)
Quarter: 2019Q1

REPORT INFORMATION
  Report Type: Report from Study
  Country: None (occurrence: PE)
  Receive Date: 20190309
  Receipt Date: 20190309
  Transmission Date: 20190418
  Serious: Yes (Other)
  Sender: FDA-Public Use
  Company Number: PE-ABBVIE-19K-127-2696324-00

PATIENT
  Age: 70 Year
  Sex: Male
  Weight: 73 kg

DRUGS (1)
  1. HUMIRA [Suspect]
     Active Substance: ADALIMUMAB
     Indication: RHEUMATOID ARTHRITIS
     Route: 058
     Dates: start: 20150413, end: 20190110

REACTIONS (1)
  - Prostatic disorder [Recovering/Resolving]

NARRATIVE: CASE EVENT DATE: 201504
